FAERS Safety Report 22067992 (Version 1)
Quarter: 2023Q1

REPORT INFORMATION
  Report Type: Spontaneous
  Country: JP (occurrence: None)
  Receive Date: 20230307
  Receipt Date: 20230307
  Transmission Date: 20230418
  Serious: Yes (Hospitalization)
  Sender: FDA-Public Use
  Company Number: JP-ROCHE-3298414

PATIENT
  Age: 43 Year
  Sex: Female

DRUGS (1)
  1. XOFLUZA [Suspect]
     Active Substance: BALOXAVIR MARBOXIL
     Indication: Influenza
     Route: 048
     Dates: start: 20230222, end: 20230222

REACTIONS (2)
  - Abdominal pain [Recovered/Resolved]
  - Melaena [Recovering/Resolving]

NARRATIVE: CASE EVENT DATE: 20230224
